FAERS Safety Report 25358795 (Version 3)
Quarter: 2025Q3

REPORT INFORMATION
  Report Type: Report from Study
  Country: US (occurrence: US)
  Receive Date: 20250526
  Receipt Date: 20250721
  Transmission Date: 20251020
  Serious: Yes (Other)
  Sender: MALLINCKRODT
  Company Number: US-MALLINCKRODT-MNK202501564

PATIENT
  Sex: Female

DRUGS (1)
  1. CORTICOTROPIN [Suspect]
     Active Substance: CORTICOTROPIN
     Indication: Rheumatoid arthritis

REACTIONS (9)
  - Biopsy [Unknown]
  - Chronic kidney disease [Unknown]
  - Wound [Unknown]
  - Sinus disorder [Unknown]
  - Oropharyngeal discomfort [Not Recovered/Not Resolved]
  - Brain fog [Unknown]
  - Arthralgia [Unknown]
  - Peripheral swelling [Unknown]
  - Therapeutic product effect incomplete [Unknown]
